FAERS Safety Report 9008770 (Version 1)
Quarter: 2013Q1

REPORT INFORMATION
  Report Type: Spontaneous
  Country: US (occurrence: US)
  Receive Date: 20130111
  Receipt Date: 20130111
  Transmission Date: 20140127
  Serious: No
  Sender: FDA-Public Use
  Company Number: US-BAYER-2013-003789

PATIENT
  Age: 65 Year
  Sex: Female

DRUGS (1)
  1. AVELOX [Suspect]
     Indication: BACTERIAL INFECTION
     Dosage: 400 MG, QD
     Dates: start: 20130107, end: 20130107

REACTIONS (5)
  - Heart rate increased [Recovered/Resolved]
  - Hypoaesthesia [Recovered/Resolved]
  - Initial insomnia [Recovered/Resolved]
  - Asthenia [Recovered/Resolved]
  - Dizziness [Recovered/Resolved]
